FAERS Safety Report 8450702-5 (Version None)
Quarter: 2012Q2

REPORT INFORMATION
  Report Type: 
  Country: None (occurrence: None)
  Receive Date: 20120613
  Receipt Date: 20120604
  Transmission Date: 20120825
  Serious: Yes (Other)
  Sender: FDA-Public Use
  Company Number: AUR-APL-2012-02552

PATIENT
  Age: 80 Year
  Sex: Female
  Weight: 62.6 kg

DRUGS (6)
  1. AMLODIPINE [Suspect]
     Indication: PRODUCT USED FOR UNKNOWN INDICATION
     Dosage: (5 MG), UNKNOWN
  2. PLAVIX [Suspect]
     Indication: PRODUCT USED FOR UNKNOWN INDICATION
     Dosage: (75 MG), ORAL
     Route: 048
     Dates: start: 20120501
  3. OMEPRAZOLE [Suspect]
     Indication: PRODUCT USED FOR UNKNOWN INDICATION
     Dosage: (20 MG), UNKNOWN
  4. COD LIVER OIL FORTIFIED TAB [Suspect]
     Indication: PRODUCT USED FOR UNKNOWN INDICATION
     Dosage: UNKNOWN
  5. LOSARTAN POTASSIUM [Suspect]
     Indication: PRODUCT USED FOR UNKNOWN INDICATION
     Dosage: (50 MG), UNKNOWN
  6. METOPROLOL TARTRATE [Suspect]
     Indication: PRODUCT USED FOR UNKNOWN INDICATION
     Dosage: UNKNOWN

REACTIONS (6)
  - VISUAL IMPAIRMENT [None]
  - FATIGUE [None]
  - DRUG INTERACTION [None]
  - INTRAOCULAR PRESSURE INCREASED [None]
  - CONDITION AGGRAVATED [None]
  - ASTHENIA [None]
